FAERS Safety Report 4325901-4 (Version None)
Quarter: 2004Q1

REPORT INFORMATION
  Report Type: 
  Country: None (occurrence: None)
  Receive Date: 20040329
  Receipt Date: 20021014
  Transmission Date: 20041129
  Serious: Yes (Hospitalization, Disabling)
  Sender: FDA-Public Use
  Company Number: US-MERCK-0309USA02315

PATIENT
  Age: 67 Year
  Sex: Female
  Weight: 86 kg

DRUGS (11)
  1. TYLENOL (CAPLET) [Concomitant]
     Route: 065
     Dates: start: 19940101
  2. CODEINE [Concomitant]
     Route: 065
  3. VASOTEC [Concomitant]
     Indication: HYPERTENSION
     Route: 048
     Dates: start: 19940101
  4. PREMARIN [Concomitant]
     Route: 065
     Dates: end: 20010201
  5. PREMARIN [Concomitant]
     Route: 065
     Dates: start: 20010201
  6. HYDROCODONE HYDROCHLORIDE [Concomitant]
     Indication: CHEST WALL PAIN
     Route: 065
  7. LEVSIN PB [Concomitant]
     Route: 065
  8. SYNTHROID [Concomitant]
     Indication: THYROID DISORDER
     Route: 048
  9. PRILOSEC [Concomitant]
     Indication: GASTROOESOPHAGEAL REFLUX DISEASE
     Route: 048
  10. VIOXX [Suspect]
     Indication: ARTHRITIS
     Route: 048
     Dates: start: 20010203, end: 20010910
  11. ZOCOR [Concomitant]
     Indication: LIPIDS ABNORMAL
     Route: 048
     Dates: start: 19940101

REACTIONS (33)
  - ANGINA PECTORIS [None]
  - AORTIC STENOSIS [None]
  - AORTIC VALVE INCOMPETENCE [None]
  - ASTHENIA [None]
  - ATELECTASIS [None]
  - ATRIAL FIBRILLATION [None]
  - BLOOD PRESSURE INCREASED [None]
  - CARDIAC MURMUR [None]
  - CAROTID BRUIT [None]
  - CELLULITIS [None]
  - CONSTIPATION [None]
  - DEPRESSION [None]
  - DISTURBANCE IN ATTENTION [None]
  - DIVERTICULUM [None]
  - DIZZINESS [None]
  - DYSPEPSIA [None]
  - DYSPHAGIA [None]
  - DYSPNOEA EXERTIONAL [None]
  - DYSPNOEA PAROXYSMAL NOCTURNAL [None]
  - EXERCISE TOLERANCE DECREASED [None]
  - FATIGUE [None]
  - IMPAIRED HEALING [None]
  - INJURY [None]
  - LUNG NEOPLASM [None]
  - MEDICAL DEVICE COMPLICATION [None]
  - MITRAL VALVE INCOMPETENCE [None]
  - MUSCLE SPASMS [None]
  - NAUSEA [None]
  - PALPITATIONS [None]
  - POSTOPERATIVE INFECTION [None]
  - STERNAL INJURY [None]
  - SYNCOPE [None]
  - VENTRICULAR HYPERTROPHY [None]
